FAERS Safety Report 17370690 (Version 4)
Quarter: 2020Q2

REPORT INFORMATION
  Report Type: Report from Study
  Country: US (occurrence: US)
  Receive Date: 20200205
  Receipt Date: 20200626
  Transmission Date: 20200713
  Serious: Yes (Hospitalization)
  Sender: FDA-Public Use
  Company Number: US-ACTELION-A-NJ2020-200081

PATIENT
  Sex: Female

DRUGS (2)
  1. MINIMS [Concomitant]
  2. OPSUMIT [Suspect]
     Active Substance: MACITENTAN
     Indication: PULMONARY HYPERTENSION
     Dosage: 10 MG, QD
     Route: 048
     Dates: start: 20191108

REACTIONS (8)
  - Hypertension [Unknown]
  - Fatigue [Unknown]
  - Dizziness [Unknown]
  - Product dose omission [Unknown]
  - Psychotic behaviour [Not Recovered/Not Resolved]
  - Hospitalisation [Unknown]
  - Pruritus [Unknown]
  - Hyperhidrosis [Unknown]
